FAERS Safety Report 13060883 (Version 1)
Quarter: 2016Q4

REPORT INFORMATION
  Report Type: Spontaneous
  Country: FR (occurrence: FR)
  Receive Date: 20161225
  Receipt Date: 20161225
  Transmission Date: 20170207
  Serious: Yes (Death)
  Sender: FDA-Public Use
  Company Number: FR-ROCHE-1871204

PATIENT
  Age: 64 Year
  Sex: Male

DRUGS (18)
  1. LASILIX [Concomitant]
     Active Substance: FUROSEMIDE
     Route: 065
  2. NEBIVOLOL. [Concomitant]
     Active Substance: NEBIVOLOL
  3. EZETROL [Concomitant]
     Active Substance: EZETIMIBE
  4. ALLOPURINOL. [Concomitant]
     Active Substance: ALLOPURINOL
     Route: 065
  5. NULOJIX [Suspect]
     Active Substance: BELATACEPT
     Indication: RENAL TRANSPLANT
     Route: 041
     Dates: start: 20160330, end: 20160803
  6. ADVAGRAF [Suspect]
     Active Substance: TACROLIMUS
     Indication: RENAL TRANSPLANT
     Route: 048
     Dates: start: 2012, end: 20160427
  7. METFORMIN [Concomitant]
     Active Substance: METFORMIN HYDROCHLORIDE
     Route: 065
  8. MOPRAL [Concomitant]
     Active Substance: OMEPRAZOLE SODIUM
  9. LERCANIDIPINE [Concomitant]
     Active Substance: LERCANIDIPINE
  10. SPECIAFOLDINE [Concomitant]
     Active Substance: FOLIC ACID
  11. COLCHICINE. [Concomitant]
     Active Substance: COLCHICINE
  12. CELLCEPT [Suspect]
     Active Substance: MYCOPHENOLATE MOFETIL\MYCOPHENOLATE MOFETIL HYDROCHLORIDE
     Indication: RENAL TRANSPLANT
     Route: 048
     Dates: start: 200512, end: 201406
  13. CORTANCYL [Suspect]
     Active Substance: PREDNISONE
     Indication: RENAL TRANSPLANT
     Route: 048
     Dates: start: 200512
  14. TRULICITY [Concomitant]
     Active Substance: DULAGLUTIDE
  15. UVEDOSE [Concomitant]
     Active Substance: CHOLECALCIFEROL
  16. HYPERIUM [Concomitant]
     Active Substance: RILMENIDINE PHOSPHATE
  17. PREVISCAN (FRANCE) [Concomitant]
     Active Substance: FLUINDIONE
  18. RENITEC [Concomitant]
     Active Substance: ENALAPRIL MALEATE

REACTIONS (7)
  - Hepatocellular injury [Fatal]
  - Acute kidney injury [Fatal]
  - Splenic rupture [Fatal]
  - B-cell lymphoma [Fatal]
  - Thrombocytopenia [Fatal]
  - Cardiac arrest [Fatal]
  - Shock haemorrhagic [Fatal]

NARRATIVE: CASE EVENT DATE: 20160809
